FAERS Safety Report 4664921-7 (Version None)
Quarter: 2005Q2

REPORT INFORMATION
  Report Type: 
  Country: None (occurrence: None)
  Receive Date: 20050518
  Receipt Date: 20050427
  Transmission Date: 20051028
  Serious: Yes (Death)
  Sender: FDA-Public Use
  Company Number: 2005AP02495

PATIENT
  Age: 16196 Day
  Sex: Female

DRUGS (5)
  1. SEROQUEL [Suspect]
     Indication: SCHIZOPHRENIA
     Route: 048
     Dates: start: 20041208
  2. LORAZEPAM [Concomitant]
     Indication: SCHIZOPHRENIA
     Route: 048
     Dates: start: 20041208
  3. SILECE [Concomitant]
     Indication: SCHIZOPHRENIA
     Route: 048
     Dates: start: 20041208
  4. BENZALIN [Concomitant]
     Indication: SCHIZOPHRENIA
     Route: 048
     Dates: start: 20041208
  5. PURSENNID [Concomitant]
     Indication: CONSTIPATION
     Route: 048
     Dates: start: 20041208

REACTIONS (3)
  - ASPIRATION [None]
  - CHOKING [None]
  - RESPIRATORY ARREST [None]
